FAERS Safety Report 5579526-3 (Version None)
Quarter: 2007Q4

REPORT INFORMATION
  Report Type: 
  Country: None (occurrence: None)
  Receive Date: 20071130
  Receipt Date: 20070705
  Transmission Date: 20080405
  Serious: No
  Sender: FDA-Public Use
  Company Number: US200707001872

PATIENT
  Age: 52 Year
  Sex: Female
  Weight: 96.1 kg

DRUGS (3)
  1. BYETTA [Suspect]
     Indication: TYPE 2 DIABETES MELLITUS
     Dosage: 5 UG, 2/D, SUBCUTANEOUS
     Route: 058
     Dates: start: 20000630, end: 20070703
  2. TETANUS ANTITOXIN              (TETANUS ANTITOXIN) INJECTION [Concomitant]
  3. PNEUMOCOCCAL VACCINE                   (PNEUMOCOCCAL VACCINE) [Concomitant]

REACTIONS (12)
  - ABDOMINAL PAIN [None]
  - BLOOD GLUCOSE INCREASED [None]
  - CHEST PAIN [None]
  - COUGH [None]
  - DIARRHOEA [None]
  - MALAISE [None]
  - NASOPHARYNGITIS [None]
  - NAUSEA [None]
  - PHARYNGOLARYNGEAL PAIN [None]
  - RASH [None]
  - VOMITING [None]
  - WEIGHT DECREASED [None]
